FAERS Safety Report 21138738 (Version 15)
Quarter: 2025Q1

REPORT INFORMATION
  Report Type: Report from Study
  Country: EC (occurrence: EC)
  Receive Date: 20220727
  Receipt Date: 20250130
  Transmission Date: 20250409
  Serious: Yes (Hospitalization, Other)
  Sender: NOVARTIS
  Company Number: EC-NOVARTISPH-NVSC2022EC166213

PATIENT
  Age: 71 Year
  Sex: Female

DRUGS (6)
  1. KISQALI [Suspect]
     Active Substance: RIBOCICLIB
     Indication: Breast cancer
     Dosage: 600 MG, QD
     Route: 048
     Dates: start: 20211015, end: 20220112
  2. KISQALI [Suspect]
     Active Substance: RIBOCICLIB
     Indication: Breast cancer metastatic
     Dosage: 600 MG, QD
     Route: 048
     Dates: start: 20220202
  3. KISQALI [Suspect]
     Active Substance: RIBOCICLIB
     Dosage: 400 MG, QD
     Route: 048
  4. FULVESTRANT [Suspect]
     Active Substance: FULVESTRANT
     Indication: Hormone receptor positive breast cancer
     Route: 065
     Dates: start: 202306
  5. FULVESTRANT [Suspect]
     Active Substance: FULVESTRANT
     Route: 030
     Dates: start: 20240227
  6. FULVESTRANT [Suspect]
     Active Substance: FULVESTRANT
     Route: 065

REACTIONS (23)
  - Tendonitis [Recovered/Resolved]
  - Intracranial calcification [Unknown]
  - Blood pressure increased [Unknown]
  - Intervertebral disc disorder [Not Recovered/Not Resolved]
  - Arteriosclerosis [Not Recovered/Not Resolved]
  - Decreased immune responsiveness [Recovered/Resolved]
  - Influenza [Recovered/Resolved]
  - Hypotension [Recovering/Resolving]
  - Blood potassium decreased [Recovering/Resolving]
  - General physical health deterioration [Recovered/Resolved]
  - Influenza [Recovered/Resolved]
  - Toxicity to various agents [Unknown]
  - Dizziness [Unknown]
  - Headache [Not Recovered/Not Resolved]
  - Fatigue [Unknown]
  - Platelet count decreased [Recovering/Resolving]
  - Pain in extremity [Recovered/Resolved]
  - Abdominal discomfort [Not Recovered/Not Resolved]
  - Pain in extremity [Recovered/Resolved]
  - Tumour marker increased [Not Recovered/Not Resolved]
  - Decreased immune responsiveness [Recovering/Resolving]
  - Ill-defined disorder [Not Recovered/Not Resolved]
  - Drug ineffective [Unknown]

NARRATIVE: CASE EVENT DATE: 20220601
